FAERS Safety Report 8693940 (Version 2)
Quarter: 2013Q2

REPORT INFORMATION
  Report Type: Spontaneous
  Country: US (occurrence: US)
  Receive Date: 20120731
  Receipt Date: 20130531
  Transmission Date: 20140414
  Serious: Yes (Other)
  Sender: FDA-Public Use
  Company Number: US-PFIZER INC-2012181348

PATIENT
  Age: 46 Year
  Sex: Male

DRUGS (2)
  1. CHANTIX [Suspect]
     Dosage: STARTER PACK TABLETS (53 KIT), UNK
     Dates: start: 20070801
  2. CHANTIX [Suspect]
     Dosage: 1 MG TABLETS (56 KIT), UNK
     Dates: start: 20070823, end: 20080205

REACTIONS (6)
  - Suicidal behaviour [Unknown]
  - Depression [Unknown]
  - Anxiety [Unknown]
  - Anger [Unknown]
  - Aggression [Unknown]
  - Abnormal dreams [Unknown]
